FAERS Safety Report 19498121 (Version 1)
Quarter: 2021Q3

REPORT INFORMATION
  Report Type: Report from Study
  Country: IT (occurrence: IT)
  Receive Date: 20210706
  Receipt Date: 20210706
  Transmission Date: 20211014
  Serious: Yes (Hospitalization)
  Sender: FDA-Public Use
  Company Number: IT-TEVA-2021-IT-1930050

PATIENT
  Age: 81 Year
  Sex: Female

DRUGS (4)
  1. EZETIMIBE/SIMVASTATINA [Concomitant]
  2. LERCANIDIPINE [Concomitant]
     Active Substance: LERCANIDIPINE
  3. ENALAPRIL [Concomitant]
     Active Substance: ENALAPRIL
  4. DICLOFENAC [Suspect]
     Active Substance: DICLOFENAC
     Indication: ARTHRALGIA
     Dosage: 150MG
     Route: 048
     Dates: start: 20210512, end: 20210516

REACTIONS (4)
  - Vomiting [Recovering/Resolving]
  - Abdominal pain upper [Recovering/Resolving]
  - Melaena [Recovering/Resolving]
  - Nausea [Recovering/Resolving]

NARRATIVE: CASE EVENT DATE: 20210516
